FAERS Safety Report 9900190 (Version 4)
Quarter: 2014Q2

REPORT INFORMATION
  Report Type: Spontaneous
  Country: FR (occurrence: FR)
  Receive Date: 20140214
  Receipt Date: 20140623
  Transmission Date: 20141212
  Serious: Yes (Other)
  Sender: FDA-Public Use
  Company Number: FR-ABBVIE-14P-056-1200475-00

PATIENT
  Age: 27 Year
  Sex: Female

DRUGS (5)
  1. HUMIRA [Suspect]
     Indication: CROHN^S DISEASE
     Route: 058
     Dates: start: 20130517, end: 20130517
  2. HUMIRA [Suspect]
     Route: 058
     Dates: start: 20130603, end: 20130603
  3. HUMIRA [Suspect]
     Route: 058
     Dates: end: 2013
  4. HUMIRA [Suspect]
     Dates: start: 2013, end: 20140120
  5. IMUREL [Concomitant]
     Indication: CROHN^S DISEASE
     Route: 048
     Dates: start: 20130517

REACTIONS (5)
  - Proteinuria [Not Recovered/Not Resolved]
  - Butterfly rash [Not Recovered/Not Resolved]
  - Antinuclear antibody positive [Not Recovered/Not Resolved]
  - Lupus-like syndrome [Not Recovered/Not Resolved]
  - Lupus-like syndrome [Recovering/Resolving]
